FAERS Safety Report 6378754-7 (Version None)
Quarter: 2009Q3

REPORT INFORMATION
  Report Type: 
  Country: None (occurrence: None)
  Receive Date: 20090928
  Receipt Date: 20090831
  Transmission Date: 20100115
  Serious: Yes (Life-Threatening)
  Sender: FDA-Public Use
  Company Number: NZ-ASTRAZENECA-2009SE14371

PATIENT
  Age: 6278 Day
  Sex: Male

DRUGS (1)
  1. MEROPENEM [Suspect]
     Indication: LUNG ABSCESS
     Dosage: 2 GM
     Route: 042
     Dates: start: 20020312, end: 20020401

REACTIONS (1)
  - ANAPHYLACTIC REACTION [None]
